FAERS Safety Report 4653486-1 (Version None)
Quarter: 2005Q2

REPORT INFORMATION
  Report Type: 
  Country: None (occurrence: None)
  Receive Date: 20050503
  Receipt Date: 20050405
  Transmission Date: 20051028
  Serious: Yes (Death, Hospitalization)
  Sender: FDA-Public Use
  Company Number: PAR_0004_2005

PATIENT
  Age: 86 Year
  Sex: Female

DRUGS (5)
  1. SARIDON N FORTE [Suspect]
     Indication: BACK PAIN
     Dosage: 2400 MG QDAY PO
     Route: 048
     Dates: start: 20050301, end: 20050313
  2. AMOXI-MEPHA [Suspect]
     Indication: CHRONIC OBSTRUCTIVE PULMONARY DISEASE
     Dosage: 1125 MG QDAY PO
     Route: 048
     Dates: start: 20050311, end: 20050313
  3. AMOXI-MEPHA [Suspect]
     Indication: CONDITION AGGRAVATED
     Dosage: 1125 MG QDAY PO
     Route: 048
     Dates: start: 20050311, end: 20050313
  4. CAPTOPRIL [Concomitant]
  5. TORSEMIDE [Concomitant]

REACTIONS (5)
  - BLOOD ALKALINE PHOSPHATASE INCREASED [None]
  - GAMMA-GLUTAMYLTRANSFERASE INCREASED [None]
  - GASTROINTESTINAL HAEMORRHAGE [None]
  - HAEMATEMESIS [None]
  - PROTHROMBIN TIME PROLONGED [None]
